FAERS Safety Report 8111304-3 (Version None)
Quarter: 2012Q1

REPORT INFORMATION
  Report Type: 
  Country: None (occurrence: None)
  Receive Date: 20120203
  Receipt Date: 20110811
  Transmission Date: 20120608
  Serious: No
  Sender: FDA-Public Use
  Company Number: US-GLAXOSMITHKLINE-A0941425A

PATIENT
  Sex: Male

DRUGS (3)
  1. TRAPPSOL [Interacting]
     Indication: NIEMANN-PICK DISEASE
     Dosage: 2000MGK TWO TIMES PER WEEK
     Route: 042
     Dates: start: 20101227
  2. LAMICTAL [Suspect]
     Indication: PRODUCT USED FOR UNKNOWN INDICATION
  3. LAMICTAL [Suspect]

REACTIONS (2)
  - STARING [None]
  - DRUG INTERACTION [None]
